FAERS Safety Report 7572235-0 (Version None)
Quarter: 2011Q2

REPORT INFORMATION
  Report Type: 
  Country: None (occurrence: None)
  Receive Date: 20110624
  Receipt Date: 20110613
  Transmission Date: 20111010
  Serious: Yes (Other)
  Sender: FDA-Public Use
  Company Number: PHHY2011BR53645

PATIENT
  Sex: Male

DRUGS (2)
  1. DIOVAN [Suspect]
  2. BUFFERIN [Suspect]

REACTIONS (1)
  - INFARCTION [None]
